FAERS Safety Report 15233581 (Version 2)
Quarter: 2018Q3

REPORT INFORMATION
  Report Type: Report from Study
  Country: JP (occurrence: JP)
  Receive Date: 20180802
  Receipt Date: 20180816
  Transmission Date: 20181010
  Serious: Yes (Other)
  Sender: FDA-Public Use
  Company Number: JP-INCYTE CORPORATION-2018IN007429

PATIENT

DRUGS (5)
  1. JAKAVI [Suspect]
     Active Substance: RUXOLITINIB
     Dosage: 30 MG/DAY AND 25 MG/DAY EVERY OTHER DAY
     Route: 048
  2. JAKAVI [Suspect]
     Active Substance: RUXOLITINIB
     Indication: MYELOFIBROSIS
     Dosage: 10 MG, BID
     Route: 048
     Dates: start: 20141214
  3. JAKAVI [Suspect]
     Active Substance: RUXOLITINIB
     Dosage: 15 MG, BID
     Route: 048
     Dates: start: 20161118
  4. JAKAVI [Suspect]
     Active Substance: RUXOLITINIB
     Dosage: 40 MG, QD
     Route: 048
  5. JAKAVI [Suspect]
     Active Substance: RUXOLITINIB
     Dosage: UNK
     Route: 048

REACTIONS (12)
  - Withdrawal syndrome [Unknown]
  - Anaemia [Unknown]
  - Herpes zoster [Unknown]
  - Pneumonia [Unknown]
  - Splenomegaly [Unknown]
  - Diarrhoea [Unknown]
  - Monoplegia [Unknown]
  - Splenomegaly [Recovering/Resolving]
  - Pyrexia [Unknown]
  - Platelet count decreased [Unknown]
  - White blood cell count increased [Unknown]
  - Back pain [Unknown]

NARRATIVE: CASE EVENT DATE: 20161111
